FAERS Safety Report 6467449-7 (Version None)
Quarter: 2009Q4

REPORT INFORMATION
  Report Type: 
  Country: None (occurrence: None)
  Receive Date: 20091202
  Receipt Date: 20091125
  Transmission Date: 20100525
  Serious: Yes (Hospitalization)
  Sender: FDA-Public Use
  Company Number: B0609740A

PATIENT
  Sex: Male
  Weight: 12 kg

DRUGS (1)
  1. VENTOLIN [Suspect]
     Dosage: 1UNIT AS REQUIRED
     Route: 055
     Dates: start: 20091031, end: 20091031

REACTIONS (3)
  - ERYTHEMA [None]
  - HYPERSENSITIVITY [None]
  - URTICARIA [None]
